FAERS Safety Report 5339942-1 (Version None)
Quarter: 2007Q2

REPORT INFORMATION
  Report Type: 
  Country: None (occurrence: None)
  Receive Date: 20070531
  Receipt Date: 20070521
  Transmission Date: 20071010
  Serious: Yes (Other)
  Sender: FDA-Public Use
  Company Number: FR-AMGEN-US223598

PATIENT
  Sex: Male

DRUGS (3)
  1. ENBREL [Suspect]
     Indication: ANKYLOSING SPONDYLITIS
     Dosage: LYOPHILIZED 25 MG 1X 1 PER WEEK
     Route: 058
     Dates: start: 20040101, end: 20070401
  2. ENBREL [Suspect]
     Dosage: PRE-FILLED SYRINGE 25 MG 1X1 PER WEEK
     Dates: start: 20070502
  3. METHADONE HCL [Concomitant]
     Dosage: UNKNOWN

REACTIONS (6)
  - DYSPHAGIA [None]
  - HYPERHIDROSIS [None]
  - LARYNGEAL OEDEMA [None]
  - LARYNGOSPASM [None]
  - MALAISE [None]
  - PHARYNGEAL ERYTHEMA [None]
